FAERS Safety Report 20028898 (Version 1)
Quarter: 2021Q4

REPORT INFORMATION
  Report Type: Spontaneous
  Country: US (occurrence: US)
  Receive Date: 20211103
  Receipt Date: 20211103
  Transmission Date: 20220303
  Serious: No
  Sender: FDA-Public Use
  Company Number: US-ELI_LILLY_AND_COMPANY-US202111001203

PATIENT
  Age: 79 Year
  Sex: Female

DRUGS (2)
  1. TRULICITY [Suspect]
     Active Substance: DULAGLUTIDE
     Indication: Diabetes mellitus
     Dosage: 0.75 MG, UNKNOWN
     Route: 065
  2. TRULICITY [Suspect]
     Active Substance: DULAGLUTIDE
     Dosage: 0.75 MG, UNKNOWN
     Route: 065

REACTIONS (12)
  - Gait disturbance [Unknown]
  - Nervousness [Unknown]
  - Dysarthria [Unknown]
  - Regurgitation [Unknown]
  - Weight increased [Unknown]
  - Feeling jittery [Unknown]
  - Diverticulitis [Unknown]
  - Rash pruritic [Not Recovered/Not Resolved]
  - Swelling face [Recovered/Resolved]
  - Diarrhoea [Unknown]
  - Constipation [Unknown]
  - Nausea [Recovered/Resolved]

NARRATIVE: CASE EVENT DATE: 20211001
